FAERS Safety Report 17791808 (Version 1)
Quarter: 2020Q2

REPORT INFORMATION
  Report Type: Spontaneous
  Country: US (occurrence: US)
  Receive Date: 20200515
  Receipt Date: 20200515
  Transmission Date: 20200714
  Serious: Yes (Life-Threatening)
  Sender: FDA-Public Use
  Company Number: None

PATIENT
  Age: 39 Year
  Sex: Female
  Weight: 109 kg

DRUGS (8)
  1. ONDANSETRON 4MG IVP [Concomitant]
     Dates: start: 20200409, end: 20200413
  2. LEVOFLOXACIN 750MG PO [Concomitant]
     Dates: start: 20200512, end: 20200513
  3. MELATONIN 3MG [Concomitant]
     Dates: start: 20200411, end: 20200411
  4. ACETAMINOPHEN 650 MG PO [Concomitant]
     Dates: start: 20200409, end: 20200414
  5. MAALOX-PLUS 30 ML PO [Concomitant]
     Dates: start: 20200409, end: 20200414
  6. ALBUTEROL MDI [Concomitant]
     Active Substance: ALBUTEROL
     Dates: start: 20200409, end: 20200414
  7. ENOXAPARIN 40MG SC [Concomitant]
     Dates: start: 20200410, end: 20200414
  8. HYDROXYCHLOROQUINE SULFATE. [Suspect]
     Active Substance: HYDROXYCHLOROQUINE SULFATE
     Indication: COVID-19
     Route: 048
     Dates: start: 20200410, end: 20200512

REACTIONS (1)
  - Electrocardiogram QT prolonged [None]

NARRATIVE: CASE EVENT DATE: 20200413
